FAERS Safety Report 4796822-8 (Version None)
Quarter: 2005Q3

REPORT INFORMATION
  Report Type: 
  Country: None (occurrence: None)
  Receive Date: 20050916
  Receipt Date: 20050503
  Transmission Date: 20060218
  Serious: Yes (Other)
  Sender: FDA-Public Use
  Company Number: US-JNJFOC-20050501596

PATIENT
  Age: 56 Year
  Sex: Female

DRUGS (6)
  1. TOPAMAX [Suspect]
     Indication: PAIN
     Dosage: 400 MG, IN 1 DAY, ORAL
     Route: 048
     Dates: start: 20020101
  2. TOPAMAX [Suspect]
     Indication: RADICULITIS
     Dosage: 400 MG, IN 1 DAY, ORAL
     Route: 048
     Dates: start: 20020101
  3. BEXTRA [Concomitant]
  4. CARDIZEM [Concomitant]
  5. KLONOPIN [Concomitant]
  6. TALACEN (FORTAGESIC) [Concomitant]

REACTIONS (1)
  - THROMBOCYTOPENIA [None]
